FAERS Safety Report 4448768-2 (Version None)
Quarter: 2004Q3

REPORT INFORMATION
  Report Type: 
  Country: None (occurrence: None)
  Receive Date: 20040909
  Receipt Date: 20040819
  Transmission Date: 20050211
  Serious: Yes (Other)
  Sender: FDA-Public Use
  Company Number: A03200402834

PATIENT
  Age: 75 Year
  Sex: Male

DRUGS (1)
  1. PLAQUENIL [Suspect]
     Dosage: ORAL
     Route: 048

REACTIONS (1)
  - PNEUMONIA [None]
